FAERS Safety Report 19477794 (Version 1)
Quarter: 2021Q2

REPORT INFORMATION
  Report Type: Spontaneous
  Country: US (occurrence: US)
  Receive Date: 20210630
  Receipt Date: 20210630
  Transmission Date: 20210717
  Serious: No
  Sender: FDA-Public Use
  Company Number: US-KRAMERLABS-2021-US-009488

PATIENT
  Age: 38 Year
  Sex: Male
  Weight: 103.42 kg

DRUGS (2)
  1. NIZORAL A?D [Suspect]
     Active Substance: KETOCONAZOLE
     Indication: DANDRUFF
     Dosage: USED THE PRODUCT TWICE WEEKLY ON MONDAY AND FRIDAY
     Route: 061
     Dates: start: 20210412, end: 20210426
  2. ONE?A?DAY NOS [Concomitant]
     Active Substance: MINERALS\VITAMINS

REACTIONS (5)
  - Hair texture abnormal [Recovered/Resolved]
  - Dry skin [Recovered/Resolved]
  - Skin exfoliation [Recovered/Resolved]
  - Sensitive skin [Recovered/Resolved]
  - Application site pustules [Recovered/Resolved]

NARRATIVE: CASE EVENT DATE: 20210424
